FAERS Safety Report 4758429-8 (Version None)
Quarter: 2005Q3

REPORT INFORMATION
  Report Type: 
  Country: None (occurrence: None)
  Receive Date: 20050830
  Receipt Date: 20050830
  Transmission Date: 20060218
  Serious: Yes (Life-Threatening)
  Sender: FDA-Public Use
  Company Number: None

PATIENT
  Age: 78 Year
  Sex: Female
  Weight: 54.4316 kg

DRUGS (7)
  1. BACTRIM DS [Suspect]
     Indication: EAR INFECTION
     Dosage: ONE X 2/DAY
     Dates: start: 20050808, end: 20050814
  2. CALCIUM GLUCONATE [Concomitant]
  3. MAGNESIUM [Concomitant]
  4. MULTI-VITAMINS [Concomitant]
  5. CODLIVER OIL [Concomitant]
  6. DIAZAPAM [Concomitant]
  7. SYNTHROID [Concomitant]

REACTIONS (3)
  - ANXIETY [None]
  - DYSPNOEA [None]
  - FALL [None]
